FAERS Safety Report 24629119 (Version 1)
Quarter: 2024Q4

REPORT INFORMATION
  Report Type: Spontaneous
  Country: US (occurrence: US)
  Receive Date: 20241118
  Receipt Date: 20241118
  Transmission Date: 20250114
  Serious: Yes (Other)
  Sender: ARCUTIS
  Company Number: US-ARCUTIS BIOTHERAPEUTICS INC-2024AER000349

PATIENT
  Sex: Female

DRUGS (2)
  1. ZORYVE [Suspect]
     Active Substance: ROFLUMILAST
     Indication: Dermatitis atopic
     Dosage: UNK
     Route: 061
  2. ZORYVE [Suspect]
     Active Substance: ROFLUMILAST
     Indication: Palmoplantar pustulosis

REACTIONS (5)
  - Urticaria [Unknown]
  - Cough [Unknown]
  - Pruritus [Unknown]
  - Pain [Unknown]
  - Off label use [Unknown]
